FAERS Safety Report 5822916-1 (Version None)
Quarter: 2008Q3

REPORT INFORMATION
  Report Type: 
  Country: None (occurrence: None)
  Receive Date: 20080724
  Receipt Date: 20080724
  Transmission Date: 20090109
  Serious: Yes (Other)
  Sender: FDA-Public Use
  Company Number: None

PATIENT
  Sex: Female
  Weight: 54.4316 kg

DRUGS (1)
  1. ACTONEL [Suspect]
     Indication: CALCIUM DEFICIENCY
     Dosage: 35 MG 1 DAILY ORALLY
     Route: 048
     Dates: start: 20040101, end: 20070101

REACTIONS (5)
  - BONE DENSITY DECREASED [None]
  - DISCOMFORT [None]
  - ECONOMIC PROBLEM [None]
  - TOOTH DISORDER [None]
  - TOOTH EXTRACTION [None]
